FAERS Safety Report 14471121 (Version 1)
Quarter: 2018Q1

REPORT INFORMATION
  Report Type: Spontaneous
  Country: US (occurrence: US)
  Receive Date: 20180131
  Receipt Date: 20180131
  Transmission Date: 20180509
  Serious: Yes (Disabling)
  Sender: FDA-Public Use
  Company Number: None

PATIENT
  Age: 62 Year
  Sex: Male
  Weight: 115.67 kg

DRUGS (15)
  1. ALTACE [Concomitant]
     Active Substance: RAMIPRIL
  2. METFORMIN [Concomitant]
     Active Substance: METFORMIN HYDROCHLORIDE
  3. CHERATUSSIN [Concomitant]
     Active Substance: AMMONIUM CHLORIDE\DEXTROMETHORPHAN\SODIUM CITRATE
  4. NOVOLIN [Concomitant]
     Active Substance: INSULIN HUMAN
  5. ACETAMINOPHEN. [Concomitant]
     Active Substance: ACETAMINOPHEN
  6. NATURAL FIBER LAXATIVE [Concomitant]
  7. DEPAKOTE [Suspect]
     Active Substance: DIVALPROEX SODIUM
     Indication: BIPOLAR I DISORDER
     Dosage: FREQUENCY - BID 1 PILL AM 500 MG, 2 PILLS PM 2 X 500 MG
  8. BENZTROPINE. [Concomitant]
     Active Substance: BENZTROPINE
  9. SIMVASTATIN. [Concomitant]
     Active Substance: SIMVASTATIN
  10. MULTI VITAMIN-MINERAL [Concomitant]
  11. TYLENOL [Concomitant]
     Active Substance: ACETAMINOPHEN
  12. ASPIRIN. [Concomitant]
     Active Substance: ASPIRIN
  13. INVEGA SUSTENNA [Suspect]
     Active Substance: PALIPERIDONE PALMITATE
  14. INDERAL LA [Concomitant]
     Active Substance: PROPRANOLOL HYDROCHLORIDE
  15. METAMUCIL [Concomitant]
     Active Substance: PLANTAGO SEED

REACTIONS (7)
  - Chest discomfort [None]
  - Nervous system disorder [None]
  - Insomnia [None]
  - Nausea [None]
  - Pollakiuria [None]
  - Vomiting [None]
  - Gastrointestinal disorder [None]
